FAERS Safety Report 10550535 (Version 2)
Quarter: 2014Q4

REPORT INFORMATION
  Report Type: Report from Study
  Country: US (occurrence: US)
  Receive Date: 20141029
  Receipt Date: 20141114
  Transmission Date: 20150529
  Serious: Yes (Other)
  Sender: FDA-Public Use
  Company Number: US-009507513-1410USA014819

PATIENT

DRUGS (4)
  1. FLUOROURACIL. [Suspect]
     Active Substance: FLUOROURACIL
     Indication: ADENOCARCINOMA PANCREAS
     Dosage: 175 MG/M2/DAY FOR 38 CONSECUTIVE DAYS
     Route: 042
  2. FLUOROURACIL. [Suspect]
     Active Substance: FLUOROURACIL
     Dosage: A BOLUS INFUSION OF 5-FU AT 500 MG/M2/WEEK FOR 6 WEEKS (ON DAYS 1, 8 , 15, 22, 29 AND 35 EACH CYCLE)
     Route: 042
  3. INTRON A [Suspect]
     Active Substance: INTERFERON ALFA-2B
     Indication: ADENOCARCINOMA PANCREAS
     Dosage: 3 MILLION IU, ON DAYS 1,3,5 WEEKLY UNTIL DAY 38
     Route: 058
  4. CISPLATIN. [Suspect]
     Active Substance: CISPLATIN
     Indication: ADENOCARCINOMA PANCREAS
     Dosage: 30 MG/M2, INFUSED ON THE FIRST DAY ONLY OF EACH WEEK FOR 6 WEEKS (I.E. DAYS 1, 8, 15, 22, 29, 36)
     Route: 042

REACTIONS (3)
  - Leukopenia [Unknown]
  - Cytopenia [Unknown]
  - Gastrointestinal toxicity [Unknown]
